FAERS Safety Report 6813376-2 (Version None)
Quarter: 2010Q3

REPORT INFORMATION
  Report Type: 
  Country: None (occurrence: None)
  Receive Date: 20100701
  Receipt Date: 20100628
  Transmission Date: 20110219
  Serious: Yes (Death, Other)
  Sender: FDA-Public Use
  Company Number: PHHY2010US42369

PATIENT
  Age: 39 Year
  Sex: Male

DRUGS (3)
  1. FANAPT [Suspect]
     Indication: SCHIZOPHRENIA
     Dosage: 8 MG, BID
     Route: 048
  2. HALDOL [Concomitant]
  3. THIOTHIXENE [Concomitant]

REACTIONS (4)
  - ASPIRATION [None]
  - BLOOD ETHANOL [None]
  - CHOKING [None]
  - DIZZINESS [None]
